FAERS Safety Report 19828843 (Version 2)
Quarter: 2022Q1

REPORT INFORMATION
  Report Type: Report from Study
  Country: BR (occurrence: BR)
  Receive Date: 20210915
  Receipt Date: 20220201
  Transmission Date: 20220424
  Serious: Yes (Hospitalization, Other)
  Sender: FDA-Public Use
  Company Number: BR-ABBVIE-21K-020-4076863-00

PATIENT
  Age: 78 Year
  Sex: Female
  Weight: 57 kg

DRUGS (1)
  1. HUMIRA [Suspect]
     Active Substance: ADALIMUMAB
     Indication: Rheumatoid arthritis
     Dosage: UNSPECIFIED DOSE
     Route: 058
     Dates: start: 20120820

REACTIONS (9)
  - Respiratory failure [Unknown]
  - Limb mass [Unknown]
  - COVID-19 [Recovering/Resolving]
  - Anaemia [Unknown]
  - Weight decreased [Unknown]
  - Faeces discoloured [Unknown]
  - Renal disorder [Unknown]
  - Lung disorder [Unknown]
  - Gait inability [Unknown]

NARRATIVE: CASE EVENT DATE: 20210727
